FAERS Safety Report 20009381 (Version 3)
Quarter: 2021Q4

REPORT INFORMATION
  Report Type: Spontaneous
  Country: US (occurrence: US)
  Receive Date: 20211029
  Receipt Date: 20211201
  Transmission Date: 20220303
  Serious: No
  Sender: FDA-Public Use
  Company Number: US-JNJFOC-20211028762

PATIENT
  Age: 34 Year
  Sex: Female

DRUGS (1)
  1. TREMFYA [Suspect]
     Active Substance: GUSELKUMAB
     Indication: Product used for unknown indication
     Route: 058

REACTIONS (3)
  - Product dose omission issue [Unknown]
  - Device deployment issue [Unknown]
  - Accidental exposure to product [Unknown]
